FAERS Safety Report 19919771 (Version 2)
Quarter: 2021Q4

REPORT INFORMATION
  Report Type: Spontaneous
  Country: JP (occurrence: JP)
  Receive Date: 20211005
  Receipt Date: 20211006
  Transmission Date: 20220303
  Serious: Yes (Other)
  Sender: FDA-Public Use
  Company Number: JP-PFIZER INC-202101250587

PATIENT
  Age: 43 Year
  Sex: Male

DRUGS (6)
  1. LEVOFLOXACIN [Suspect]
     Active Substance: LEVOFLOXACIN
     Indication: Oropharyngeal pain
     Dosage: UNK
  2. LEVOFLOXACIN [Suspect]
     Active Substance: LEVOFLOXACIN
     Indication: Cough
  3. LEVOFLOXACIN [Suspect]
     Active Substance: LEVOFLOXACIN
     Indication: Arthralgia
  4. NAPROXEN [Suspect]
     Active Substance: NAPROXEN
     Indication: Oropharyngeal pain
     Dosage: UNK
  5. NAPROXEN [Suspect]
     Active Substance: NAPROXEN
     Indication: Cough
  6. NAPROXEN [Suspect]
     Active Substance: NAPROXEN
     Indication: Arthralgia

REACTIONS (2)
  - Behcet^s syndrome [Recovering/Resolving]
  - Tubulointerstitial nephritis [Recovering/Resolving]
